FAERS Safety Report 6203197-6 (Version None)
Quarter: 2009Q2

REPORT INFORMATION
  Report Type: 
  Country: None (occurrence: None)
  Receive Date: 20090527
  Receipt Date: 20090515
  Transmission Date: 20091009
  Serious: Yes (Life-Threatening, Hospitalization, Other)
  Sender: FDA-Public Use
  Company Number: NL-WYE-H09406309

PATIENT
  Age: 50 Year
  Sex: Female

DRUGS (3)
  1. PANTOZOL [Suspect]
     Indication: HELICOBACTER INFECTION
     Route: 048
  2. CLARITHROMYCIN [Suspect]
     Indication: HELICOBACTER INFECTION
     Route: 048
  3. AMOXICILLIN [Suspect]
     Indication: HELICOBACTER INFECTION
     Route: 048

REACTIONS (3)
  - ANAPHYLACTIC SHOCK [None]
  - DRUG DISPENSING ERROR [None]
  - DRUG PRESCRIBING ERROR [None]
